FAERS Safety Report 18320142 (Version 1)
Quarter: 2020Q3

REPORT INFORMATION
  Report Type: Spontaneous
  Country: IT (occurrence: IT)
  Receive Date: 20200929
  Receipt Date: 20200929
  Transmission Date: 20201103
  Serious: Yes (Hospitalization)
  Sender: FDA-Public Use
  Company Number: IT-SUN PHARMACEUTICAL INDUSTRIES LTD-2020RR-262387

PATIENT
  Age: 53 Year
  Sex: Male

DRUGS (1)
  1. OXALIPLATINO [Suspect]
     Active Substance: OXALIPLATIN
     Indication: NON-HODGKIN^S LYMPHOMA
     Dosage: 184 MILLIGRAM, CYCLICAL
     Route: 042
     Dates: start: 20200804, end: 20200901

REACTIONS (3)
  - Dyspnoea [Recovered/Resolved]
  - Chills [Recovered/Resolved]
  - Psychomotor hyperactivity [Recovered/Resolved]

NARRATIVE: CASE EVENT DATE: 20200901
